FAERS Safety Report 25964344 (Version 1)
Quarter: 2025Q4

REPORT INFORMATION
  Report Type: Spontaneous
  Country: US (occurrence: None)
  Receive Date: 20251027
  Receipt Date: 20251027
  Transmission Date: 20260117
  Serious: No
  Sender: FDA-CTU
  Company Number: None

PATIENT

DRUGS (1)
  1. METFORMIN [Suspect]
     Active Substance: METFORMIN HYDROCHLORIDE

REACTIONS (6)
  - Weight decreased [None]
  - Iron deficiency [None]
  - Visual impairment [None]
  - Nonspecific reaction [None]
  - Hypoacusis [None]
  - Cognitive disorder [None]
